FAERS Safety Report 5850061-8 (Version None)
Quarter: 2008Q3

REPORT INFORMATION
  Report Type: 
  Country: None (occurrence: None)
  Receive Date: 20080819
  Receipt Date: 20080815
  Transmission Date: 20090109
  Serious: Yes (Hospitalization)
  Sender: FDA-Public Use
  Company Number: CA-GENENTECH-266445

PATIENT
  Sex: Female

DRUGS (2)
  1. RAPTIVA [Suspect]
     Indication: PSORIASIS
     Dosage: 1 MG/KG, UNK
     Dates: start: 20070109
  2. REBIF [Concomitant]
     Indication: PSORIASIS

REACTIONS (3)
  - ASTHENIA [None]
  - DEEP VEIN THROMBOSIS [None]
  - SENSORY LOSS [None]
